FAERS Safety Report 19731835 (Version 2)
Quarter: 2021Q3

REPORT INFORMATION
  Report Type: Report from Study
  Country: US (occurrence: US)
  Receive Date: 20210820
  Receipt Date: 20210901
  Transmission Date: 20211014
  Serious: Yes (Other)
  Sender: FDA-Public Use
  Company Number: US-TAIHO ONCOLOGY  INC-EU-2021-02592

PATIENT
  Age: 75 Year
  Sex: Male
  Weight: 82.63 kg

DRUGS (24)
  1. ATORVASTATIN [Concomitant]
     Active Substance: ATORVASTATIN
  2. ALEVE [Concomitant]
     Active Substance: NAPROXEN SODIUM
  3. FUROSEMIDE. [Concomitant]
     Active Substance: FUROSEMIDE
  4. CEFDINIR. [Concomitant]
     Active Substance: CEFDINIR
  5. HYDROCODONE/ACETAMINOPHEN [Concomitant]
     Active Substance: ACETAMINOPHEN\HYDROCODONE
  6. GABAPENTIN. [Concomitant]
     Active Substance: GABAPENTIN
  7. AMOXICILLIN. [Concomitant]
     Active Substance: AMOXICILLIN
  8. COLACE [Concomitant]
     Active Substance: DOCUSATE SODIUM
  9. FLUOCINONIDE. [Concomitant]
     Active Substance: FLUOCINONIDE
  10. AMOXICILLIN? POTASSIUM CLAVULANATE [Concomitant]
  11. PREGABALIN. [Concomitant]
     Active Substance: PREGABALIN
  12. LONSURF [Suspect]
     Active Substance: TIPIRACIL HYDROCHLORIDE\TRIFLURIDINE
     Indication: PRODUCT USED FOR UNKNOWN INDICATION
     Dosage: CYCLE, DOSE AND FREQUENCY UNKNOWN
     Route: 048
  13. ACYCLOVIR. [Concomitant]
     Active Substance: ACYCLOVIR
  14. ALBUTEROL SULFATE HFA [Concomitant]
     Active Substance: ALBUTEROL SULFATE
  15. DOXYCYCLINE HYCLATE. [Concomitant]
     Active Substance: DOXYCYCLINE HYCLATE
  16. TACROLIMUS. [Concomitant]
     Active Substance: TACROLIMUS
  17. ACETAMINOPHEN. [Concomitant]
     Active Substance: ACETAMINOPHEN
  18. ADVAIR DISKUS [Concomitant]
     Active Substance: FLUTICASONE PROPIONATE\SALMETEROL XINAFOATE
  19. FLUVOXAMINE MALEATE. [Concomitant]
     Active Substance: FLUVOXAMINE MALEATE
  20. OMEPRAZOLE. [Concomitant]
     Active Substance: OMEPRAZOLE
  21. NALOXONE [Concomitant]
     Active Substance: NALOXONE
  22. DIAZEPAM. [Concomitant]
     Active Substance: DIAZEPAM
  23. METHADONE [Concomitant]
     Active Substance: METHADONE HYDROCHLORIDE
  24. FLOMAX [Concomitant]
     Active Substance: TAMSULOSIN HYDROCHLORIDE

REACTIONS (3)
  - Abdominal discomfort [Unknown]
  - Scrotal haemorrhage [Unknown]
  - Disease progression [Unknown]
